FAERS Safety Report 7212900-8 (Version None)
Quarter: 2010Q4

REPORT INFORMATION
  Report Type: 
  Country: None (occurrence: None)
  Receive Date: 20101227
  Receipt Date: 20101209
  Transmission Date: 20110411
  Serious: Yes (Other)
  Sender: FDA-Public Use
  Company Number: AUR-APL-2010-03185

PATIENT
  Age: 78 Year
  Sex: Male

DRUGS (2)
  1. METOPROLOL [Suspect]
  2. NITRATES [Concomitant]

REACTIONS (2)
  - CONDITION AGGRAVATED [None]
  - GOUT [None]
